FAERS Safety Report 17338142 (Version 1)
Quarter: 2020Q1

REPORT INFORMATION
  Report Type: Spontaneous
  Country: US (occurrence: US)
  Receive Date: 20200129
  Receipt Date: 20200129
  Transmission Date: 20200409
  Serious: No
  Sender: FDA-Public Use
  Company Number: US-009507513-2001USA009602

PATIENT
  Age: 33 Year
  Sex: Female
  Weight: 154.2 kg

DRUGS (1)
  1. IMPLANON [Suspect]
     Active Substance: ETONOGESTREL
     Dosage: ONE IMPLANT TO BE REMOVED AFTER 3 YEARS; RIGHT ARM
     Dates: start: 2010

REACTIONS (8)
  - Complication of device removal [Not Recovered/Not Resolved]
  - Incision site haemorrhage [Unknown]
  - Incorrect product administration duration [Unknown]
  - Infertility female [Unknown]
  - Weight increased [Unknown]
  - Complication associated with device [Recovered/Resolved]
  - Device deployment issue [Not Recovered/Not Resolved]
  - Implant site fibrosis [Unknown]

NARRATIVE: CASE EVENT DATE: 2010
